FAERS Safety Report 20329845 (Version 2)
Quarter: 2022Q1

REPORT INFORMATION
  Report Type: Spontaneous
  Country: FR (occurrence: FR)
  Receive Date: 20220112
  Receipt Date: 20220202
  Transmission Date: 20220423
  Serious: Yes (Other)
  Sender: FDA-Public Use
  Company Number: None

PATIENT
  Age: 78 Year
  Sex: Female

DRUGS (12)
  1. PACLITAXEL [Suspect]
     Active Substance: PACLITAXEL
     Indication: Ovarian cancer
     Dosage: 270MILLIGRAM
     Route: 041
     Dates: start: 20211123, end: 20211123
  2. CARBOPLATIN [Suspect]
     Active Substance: CARBOPLATIN
     Indication: Ovarian cancer
     Dosage: 460 MG ON 11/23/2021 AND 12/20/2021
     Route: 041
     Dates: start: 20211123, end: 20211220
  3. COMIRNATY [Suspect]
     Active Substance: TOZINAMERAN
     Indication: COVID-19 immunisation
     Dosage: D3,COMIRNATY, CONCENTRATE FOR INJECTION. COVID-19 MRNA VACCINE (MODIFIED NUCLEOSIDE),UNIT DOSE:0.3ML
     Route: 030
     Dates: start: 20211013, end: 20211013
  4. COMIRNATY [Suspect]
     Active Substance: TOZINAMERAN
     Dosage: D2,UNIT DOSE:0.3ML
     Route: 030
     Dates: start: 20210222, end: 20210222
  5. COMIRNATY [Suspect]
     Active Substance: TOZINAMERAN
     Dosage: D1,UNIT DOSE:0.3ML
     Route: 030
     Dates: start: 20210126, end: 20210126
  6. OMEPRAZOLE [Concomitant]
     Active Substance: OMEPRAZOLE
  7. EMEND [Concomitant]
     Active Substance: APREPITANT
  8. ONDANSETRON [Concomitant]
     Active Substance: ONDANSETRON
  9. METFORMIN HYDROCHLORIDE [Concomitant]
     Active Substance: METFORMIN HYDROCHLORIDE
  10. XANAX [Concomitant]
     Active Substance: ALPRAZOLAM
  11. PERINDOPRIL [Concomitant]
     Active Substance: PERINDOPRIL
  12. SIBELIUM [Concomitant]

REACTIONS (1)
  - Capillary leak syndrome [Recovered/Resolved]

NARRATIVE: CASE EVENT DATE: 20211214
